FAERS Safety Report 8256118-9 (Version None)
Quarter: 2012Q1

REPORT INFORMATION
  Report Type: 
  Country: None (occurrence: None)
  Receive Date: 20120330
  Receipt Date: 20120319
  Transmission Date: 20120608
  Serious: Yes (Other)
  Sender: FDA-Public Use
  Company Number: FK201200847

PATIENT
  Age: 69 Year
  Sex: Male

DRUGS (1)
  1. METHYLPREDNISOLONE [Suspect]
     Indication: STEROID THERAPY
     Dosage: 900 MG, INTRAVENOUS
     Route: 042

REACTIONS (4)
  - INTESTINAL PERFORATION [None]
  - PSEUDOPOLYPOSIS [None]
  - WOUND INFECTION [None]
  - INTESTINAL ULCER [None]
